FAERS Safety Report 9421450 (Version 2)
Quarter: 2013Q3

REPORT INFORMATION
  Report Type: Spontaneous
  Country: BE (occurrence: BE)
  Receive Date: 20130726
  Receipt Date: 20130812
  Transmission Date: 20140515
  Serious: Yes (Other)
  Sender: FDA-Public Use
  Company Number: BE-AMGEN-BELSP2013052113

PATIENT
  Age: 60 Year
  Sex: Female
  Weight: 70 kg

DRUGS (4)
  1. VECTIBIX [Suspect]
     Indication: COLON CANCER METASTATIC
     Dosage: 460 UNK, UNK
     Route: 065
     Dates: start: 20130723
  2. FOLINIC ACID [Concomitant]
     Indication: COLON CANCER METASTATIC
     Dosage: UNK
  3. 5 FU [Concomitant]
     Indication: COLORECTAL CANCER METASTATIC
     Dosage: UNK
  4. IRINOTECAN [Concomitant]
     Indication: COLORECTAL CANCER METASTATIC
     Dosage: UNK

REACTIONS (5)
  - Bronchospasm [Recovered/Resolved]
  - Dyspnoea [Recovered/Resolved]
  - Wheezing [Recovered/Resolved]
  - Chest discomfort [Recovered/Resolved]
  - Chest pain [Recovered/Resolved]
